FAERS Safety Report 10630283 (Version 1)
Quarter: 2014Q4

REPORT INFORMATION
  Report Type: Spontaneous
  Country: US (occurrence: US)
  Receive Date: 20141205
  Receipt Date: 20141205
  Transmission Date: 20150529
  Serious: No
  Sender: FDA-Public Use
  Company Number: US-BRISTOL-MYERS SQUIBB COMPANY-21248786

PATIENT
  Age: 23 Year
  Sex: Male

DRUGS (3)
  1. TRAZODONE HYDROCHLORIDE. [Concomitant]
     Active Substance: TRAZODONE HYDROCHLORIDE
  2. ABILIFY [Suspect]
     Active Substance: ARIPIPRAZOLE
     Indication: BIPOLAR I DISORDER
     Dosage: UNK-UNK:20MG
     Route: 048
  3. ABILIFY MAINTENA [Suspect]
     Active Substance: ARIPIPRAZOLE
     Indication: BIPOLAR I DISORDER
     Route: 030
     Dates: start: 20140624

REACTIONS (5)
  - Stress [Unknown]
  - Malaise [Unknown]
  - Drug effect decreased [Unknown]
  - Anger [Recovered/Resolved]
  - Frustration [Recovered/Resolved]

NARRATIVE: CASE EVENT DATE: 20140624
